FAERS Safety Report 16779710 (Version 1)
Quarter: 2019Q3

REPORT INFORMATION
  Report Type: Spontaneous
  Country: US (occurrence: US)
  Receive Date: 20190716
  Receipt Date: 20190716
  Transmission Date: 20191005
  Serious: Yes (Disabling)
  Sender: FDA-Public Use
  Company Number: None

PATIENT
  Age: 56 Year
  Sex: Male
  Weight: 75.3 kg

DRUGS (3)
  1. EQUATE EYE ALLERGY RELIEF DROPS [Suspect]
     Active Substance: NAPHAZOLINE HYDROCHLORIDE\PHENIRAMINE MALEATE
  2. EQUATE EYE ALLERGY RELIEF DROPS [Suspect]
     Active Substance: NAPHAZOLINE HYDROCHLORIDE\PHENIRAMINE MALEATE
     Indication: EYE IRRITATION
     Dosage: ?          QUANTITY:1 DROP/EYE;OTHER ROUTE:EYE DROP?
     Dates: start: 201809, end: 201906
  3. EQUATE EYE ALLERGY RELIEF DROPS [Suspect]
     Active Substance: NAPHAZOLINE HYDROCHLORIDE\PHENIRAMINE MALEATE
     Indication: SEASONAL ALLERGY
     Dosage: ?          QUANTITY:1 DROP/EYE;OTHER ROUTE:EYE DROP?
     Dates: start: 201809, end: 201906

REACTIONS (6)
  - Recalled product [None]
  - Meibomian gland dysfunction [None]
  - Conjunctival haemorrhage [None]
  - Disease recurrence [None]
  - Dry eye [None]
  - Chalazion [None]

NARRATIVE: CASE EVENT DATE: 20180927
